FAERS Safety Report 6143031-6 (Version None)
Quarter: 2009Q2

REPORT INFORMATION
  Report Type: 
  Country: None (occurrence: None)
  Receive Date: 20090401
  Receipt Date: 20090401
  Transmission Date: 20091009
  Serious: Yes (Hospitalization)
  Sender: FDA-Public Use
  Company Number: None

PATIENT
  Age: 59 Year
  Sex: Male
  Weight: 65.9 kg

DRUGS (3)
  1. IBUPROFEN [Suspect]
     Indication: INFECTION
     Dosage: 600 MG TID PO
     Route: 048
     Dates: start: 20081130, end: 20081204
  2. IBUPROFEN [Suspect]
     Indication: PAIN
     Dosage: 600 MG TID PO
     Route: 048
     Dates: start: 20081130, end: 20081204
  3. METRONIDAZOLE [Suspect]
     Indication: INFECTION
     Dosage: 500 MG TID PO
     Route: 048
     Dates: start: 20081127, end: 20081204

REACTIONS (11)
  - BLISTER [None]
  - BLOOD BILIRUBIN INCREASED [None]
  - HYPERHIDROSIS [None]
  - LIVER FUNCTION TEST ABNORMAL [None]
  - MALAISE [None]
  - MYALGIA [None]
  - ORAL PAIN [None]
  - PYREXIA [None]
  - RASH [None]
  - STAPHYLOCOCCAL SEPSIS [None]
  - VASCULITIS [None]
